FAERS Safety Report 7540731-8 (Version None)
Quarter: 2011Q2

REPORT INFORMATION
  Report Type: 
  Country: None (occurrence: None)
  Receive Date: 20110610
  Receipt Date: 20110531
  Transmission Date: 20111010
  Serious: Yes (Hospitalization)
  Sender: FDA-Public Use
  Company Number: JP-ROCHE-765549

PATIENT
  Sex: Male
  Weight: 65 kg

DRUGS (20)
  1. TOCILIZUMAB [Suspect]
     Dosage: 7TH DOSE
     Route: 065
     Dates: start: 20110210, end: 20110210
  2. TOCILIZUMAB [Suspect]
     Dosage: 8TH DOSE
     Route: 065
     Dates: start: 20110310
  3. TOCILIZUMAB [Suspect]
     Indication: RHEUMATOID ARTHRITIS
     Dosage: TOTAL MONTHLY DOSE: 520 MG
     Route: 065
     Dates: start: 20100819
  4. BLINDED OCRELIZUMAB [Suspect]
     Indication: RHEUMATOID ARTHRITIS
     Dosage: 29MAY2008:DAY15,23OCT2008:WEEK 24,6NOV2008: WEEK26 DOSE ADMINISTERED
     Route: 042
     Dates: start: 20080515, end: 20090416
  5. METHOTREXATE [Suspect]
     Dosage: FREQUENCY: QS
     Route: 048
     Dates: start: 20051006, end: 20110317
  6. PREDNISOLONE [Concomitant]
     Route: 048
     Dates: start: 20110311
  7. TOCILIZUMAB [Suspect]
     Dosage: FIFTH DOSE
     Route: 065
     Dates: start: 20101209
  8. TOCILIZUMAB [Suspect]
     Route: 065
     Dates: start: 20110106
  9. LOXOPROFEN [Concomitant]
  10. ISONIAZID [Concomitant]
     Dates: start: 20051214
  11. TEPRENONE [Concomitant]
     Dates: start: 20080521
  12. PREDNISOLONE [Concomitant]
     Dosage: DOSE INCREASED.
     Route: 048
     Dates: start: 20080521
  13. TOCILIZUMAB [Suspect]
     Route: 065
     Dates: start: 20101111
  14. PREDNISOLONE [Concomitant]
     Dosage: NAME REPORTED AS: PSL
     Route: 048
     Dates: start: 20081224
  15. PREDNISOLONE [Concomitant]
     Route: 048
     Dates: start: 20090416
  16. OCRELIZUMAB [Suspect]
     Indication: RHEUMATOID ARTHRITIS
     Dosage: 30APR2009: DAY-15 DOSE, 29SEP2009:DAY-1DOSE, LAST DOSE PRIOR TO SAE: 13 OCT 2009, DAY15
     Route: 042
     Dates: start: 20090416, end: 20100225
  17. LOXOPROFEN [Concomitant]
     Dosage: DOSE INCREASED.
     Dates: start: 20080521
  18. FOLIC ACID [Concomitant]
     Dates: start: 20051006, end: 20110317
  19. PREDNISOLONE [Concomitant]
     Route: 048
  20. PREDNISOLONE [Concomitant]
     Route: 048
     Dates: start: 20090708

REACTIONS (1)
  - LYMPHOMA [None]
